FAERS Safety Report 9947580 (Version 1)
Quarter: 2014Q1

REPORT INFORMATION
  Report Type: Report from Study
  Country: US (occurrence: US)
  Receive Date: 20140303
  Receipt Date: 20140303
  Transmission Date: 20141002
  Serious: Yes (Hospitalization, Other)
  Sender: FDA-Public Use
  Company Number: US-ABBVIE-13P-163-1063675-00

PATIENT
  Age: 24 Year
  Sex: Female
  Weight: 74.91 kg

DRUGS (3)
  1. HUMIRA [Suspect]
     Indication: RHEUMATOID ARTHRITIS
     Dates: start: 2010, end: 2011
  2. HUMIRA [Suspect]
     Dates: start: 2011, end: 201205
  3. ALEVE [Concomitant]
     Indication: PAIN

REACTIONS (2)
  - Caesarean section [Recovered/Resolved]
  - Hypertension [Recovered/Resolved]
